FAERS Safety Report 5908758-7 (Version None)
Quarter: 2008Q4

REPORT INFORMATION
  Report Type: 
  Country: None (occurrence: None)
  Receive Date: 20081006
  Receipt Date: 20080929
  Transmission Date: 20090506
  Serious: Yes (Death, Hospitalization, Other)
  Sender: FDA-Public Use
  Company Number: US-BRISTOL-MYERS SQUIBB COMPANY-14268080

PATIENT
  Age: 52 Year
  Sex: Female

DRUGS (3)
  1. SPRYCEL [Suspect]
     Indication: ACUTE MYELOID LEUKAEMIA
  2. ETOPOSIDE [Suspect]
     Dates: start: 20080703, end: 20080708
  3. MITOXANTRONE [Suspect]
     Dates: start: 20080703, end: 20080708

REACTIONS (4)
  - COLITIS [None]
  - KLEBSIELLA BACTERAEMIA [None]
  - PANCYTOPENIA [None]
  - SEPSIS [None]
